FAERS Safety Report 7328097-X (Version None)
Quarter: 2011Q1

REPORT INFORMATION
  Report Type: 
  Country: None (occurrence: None)
  Receive Date: 20110303
  Receipt Date: 20110224
  Transmission Date: 20110831
  Serious: Yes (Other)
  Sender: FDA-Public Use
  Company Number: US-JNJFOC-20110300460

PATIENT
  Sex: Female

DRUGS (2)
  1. LEVAQUIN [Suspect]
     Indication: ARTHROPOD BITE
     Route: 048
  2. MULTI-VITAMINS [Concomitant]
     Indication: MEDICAL DIET
     Route: 065

REACTIONS (2)
  - WEIGHT BEARING DIFFICULTY [None]
  - MENISCUS LESION [None]
